FAERS Safety Report 8742024 (Version 2)
Quarter: 2012Q4

REPORT INFORMATION
  Report Type: Report from Study
  Country: JP (occurrence: JP)
  Receive Date: 20120824
  Receipt Date: 20120907
  Transmission Date: 20130627
  Serious: Yes (Death, Hospitalization)
  Sender: FDA-Public Use
  Company Number: JP-JNJFOC-20120713903

PATIENT
  Sex: Male
  Weight: 28 kg

DRUGS (3)
  1. REMINYL [Suspect]
     Indication: DEMENTIA ALZHEIMER^S TYPE
     Route: 048
     Dates: start: 20120112, end: 20120205
  2. DOGMATYL [Concomitant]
     Indication: DEPRESSION
     Route: 048
     Dates: end: 20120207
  3. MUCOSTA [Concomitant]
     Indication: GASTRITIS
     Route: 048
     Dates: end: 20120207

REACTIONS (1)
  - Dementia Alzheimer^s type [Fatal]
